FAERS Safety Report 10511914 (Version 2)
Quarter: 2014Q4

REPORT INFORMATION
  Report Type: Spontaneous
  Country: JP (occurrence: JP)
  Receive Date: 20141010
  Receipt Date: 20141022
  Transmission Date: 20150528
  Serious: Yes (Other)
  Sender: FDA-Public Use
  Company Number: JP-PFIZER INC-2014276372

PATIENT
  Age: 5 Year
  Sex: Female

DRUGS (1)
  1. GENOTROPIN GOQUICK [Suspect]
     Active Substance: SOMATROPIN
     Indication: SMALL FOR DATES BABY
     Dosage: 0.3 MG, WEEKLY (0.23 MG/KG/WEEK)
     Route: 058

REACTIONS (2)
  - Disease progression [Not Recovered/Not Resolved]
  - Limb asymmetry [Not Recovered/Not Resolved]
